FAERS Safety Report 8886837 (Version 1)
Quarter: 2012Q4

REPORT INFORMATION
  Report Type: 
  Country: US (occurrence: US)
  Receive Date: 20121105
  Receipt Date: 20121105
  Transmission Date: 20130627
  Serious: Yes (Hospitalization, Other)
  Sender: FDA-Public Use
  Company Number: US-PFIZER INC-2012274961

PATIENT
  Age: 86 Year
  Sex: Female
  Weight: 68.9 kg

DRUGS (2)
  1. LYRICA [Suspect]
     Indication: NEUROPATHY
     Dosage: 350 mg(2capsules of 50mg at breakfast+2capsules of 50mg at lunch+3 capsules of 50mg at night), daily
     Route: 048
  2. NORVASC [Concomitant]
     Indication: BLOOD PRESSURE HIGH
     Dosage: UNK

REACTIONS (1)
  - Pneumonia [Unknown]
